FAERS Safety Report 6721925-8 (Version None)
Quarter: 2010Q2

REPORT INFORMATION
  Report Type: 
  Country: None (occurrence: None)
  Receive Date: 20100512
  Receipt Date: 20100505
  Transmission Date: 20101027
  Serious: Yes (Other)
  Sender: FDA-Public Use
  Company Number: A0787853A

PATIENT
  Age: 52 Year
  Sex: Male

DRUGS (2)
  1. AVANDIA [Suspect]
     Dosage: 8U PER DAY
     Route: 048
     Dates: start: 19991001, end: 20070101
  2. AVANDAMET [Suspect]
     Dates: start: 20010101, end: 20081001

REACTIONS (6)
  - AMNESIA [None]
  - BLINDNESS [None]
  - DECREASED ACTIVITY [None]
  - EYE DISORDER [None]
  - INJURY [None]
  - MYOCARDIAL INFARCTION [None]
